FAERS Safety Report 5290057-0 (Version None)
Quarter: 2007Q1

REPORT INFORMATION
  Report Type: 
  Country: None (occurrence: None)
  Receive Date: 20070330
  Receipt Date: 20070314
  Transmission Date: 20070707
  Serious: Yes (Hospitalization, Other)
  Sender: FDA-Public Use
  Company Number: DSA_29575_2007

PATIENT
  Age: 48 Year
  Sex: Female

DRUGS (3)
  1. CITALOPRAM HYDROBROMIDE [Suspect]
     Indication: MAJOR DEPRESSION
     Dosage: 60 MG Q DAY
     Dates: start: 20050101, end: 20050101
  2. CITALOPRAM HYDROBROMIDE [Suspect]
     Indication: MAJOR DEPRESSION
     Dosage: VAR Q DAY
     Dates: start: 20050101, end: 20050101
  3. PAROXETINE [Suspect]
     Indication: MAJOR DEPRESSION
     Dosage: 20 MG Q DAY
     Dates: start: 20050801, end: 20050101

REACTIONS (2)
  - INSOMNIA [None]
  - RESTLESS LEGS SYNDROME [None]
